FAERS Safety Report 5935618-8 (Version None)
Quarter: 2008Q4

REPORT INFORMATION
  Report Type: 
  Country: None (occurrence: None)
  Receive Date: 20081030
  Receipt Date: 20081028
  Transmission Date: 20090506
  Serious: Yes (Hospitalization)
  Sender: FDA-Public Use
  Company Number: B0544138A

PATIENT
  Age: 73 Year
  Sex: Male

DRUGS (6)
  1. COROPRES [Suspect]
     Indication: ACUTE MYOCARDIAL INFARCTION
     Route: 048
     Dates: start: 20080110, end: 20080116
  2. TORSEMIDE [Suspect]
     Indication: ACUTE MYOCARDIAL INFARCTION
     Dosage: 10MG PER DAY
     Route: 048
     Dates: start: 20080110, end: 20080116
  3. COZAAR [Concomitant]
  4. METFORMIN HCL [Concomitant]
  5. LANTUS [Concomitant]
  6. CARDURA [Concomitant]

REACTIONS (2)
  - HYPOGLYCAEMIA [None]
  - RENAL FAILURE ACUTE [None]
